FAERS Safety Report 8988666 (Version 1)
Quarter: 2012Q4

REPORT INFORMATION
  Report Type: 
  Country: US (occurrence: US)
  Receive Date: 20121228
  Receipt Date: 20121228
  Transmission Date: 20130627
  Serious: Yes (Other)
  Sender: FDA-Public Use
  Company Number: PHEH2012US022647

PATIENT
  Age: 55 Year
  Sex: Female
  Weight: 94.33 kg

DRUGS (9)
  1. TASIGNA [Suspect]
     Indication: CHRONIC MYELOID LEUKAEMIA
     Dosage: 300 mg, BID
     Route: 048
     Dates: start: 201211
  2. CELLCEPT [Concomitant]
     Indication: CHORIORETINOPATHY
  3. LISINOPRIL ^RATIOPHARM^ [Concomitant]
     Indication: HYPERTENSION
     Dosage: 7.5 mg, QD
     Route: 048
  4. LEVOTHYROXINE [Concomitant]
     Dosage: 50 ug, QD
  5. SIMVASTATIN ^PARANOVA^ [Concomitant]
     Dosage: 40 mg, QD
  6. MULTI-VIT [Concomitant]
  7. ACIDOPHILUS [Concomitant]
  8. ZOLPRO [Concomitant]
     Dosage: 10 mg, QHS
  9. ALPRAZOLAM [Concomitant]
     Dosage: 0.5 mg, BID

REACTIONS (7)
  - Neutropenia [Not Recovered/Not Resolved]
  - Fall [Unknown]
  - Thrombocytopenia [Unknown]
  - Liver function test abnormal [Recovered/Resolved]
  - Blood bilirubin increased [Recovered/Resolved]
  - Headache [Unknown]
  - Constipation [Unknown]
